FAERS Safety Report 18073968 (Version 2)
Quarter: 2020Q3

REPORT INFORMATION
  Report Type: Spontaneous
  Country: US (occurrence: US)
  Receive Date: 20200727
  Receipt Date: 20200825
  Transmission Date: 20201103
  Serious: Yes (Hospitalization, Other)
  Sender: FDA-Public Use
  Company Number: US-PURDUE-USA-2020-0158786

PATIENT
  Sex: Male

DRUGS (5)
  1. OXYCODONE HCL TABLETS (91?490) [Suspect]
     Active Substance: OXYCODONE HYDROCHLORIDE
     Indication: SPINAL OPERATION
     Route: 048
  2. OXYCONTIN [Suspect]
     Active Substance: OXYCODONE HYDROCHLORIDE
     Indication: SPINAL OPERATION
     Dosage: UNK
     Route: 048
  3. METHADONE [Suspect]
     Active Substance: METHADONE HYDROCHLORIDE
     Indication: SPINAL OPERATION
     Dosage: UNK
     Route: 065
  4. HYDROMORPHONE TABLETS [Suspect]
     Active Substance: HYDROMORPHONE
     Indication: SPINAL OPERATION
     Route: 048
  5. HYDROCODONE BITARTRATE AND ACETAMINOPHEN [Suspect]
     Active Substance: ACETAMINOPHEN\HYDROCODONE BITARTRATE
     Indication: SPINAL OPERATION
     Route: 048

REACTIONS (4)
  - Overdose [Unknown]
  - Renal failure [Unknown]
  - Liver injury [Unknown]
  - Drug dependence [Unknown]
